FAERS Safety Report 21163535 (Version 1)
Quarter: 2022Q3

REPORT INFORMATION
  Report Type: Spontaneous
  Country: JP (occurrence: JP)
  Receive Date: 20220802
  Receipt Date: 20220802
  Transmission Date: 20221026
  Serious: Yes (Hospitalization)
  Sender: FDA-Public Use
  Company Number: JP-TEVA-2022-JP-2060145

PATIENT
  Age: 18 Year
  Sex: Male

DRUGS (14)
  1. LOSARTAN [Suspect]
     Active Substance: LOSARTAN
     Indication: Cardiac failure chronic
     Route: 048
  2. DOBUTAMINE [Suspect]
     Active Substance: DOBUTAMINE HYDROCHLORIDE
     Indication: Cardiac failure chronic
     Route: 050
     Dates: start: 2014
  3. MILRINONE [Suspect]
     Active Substance: MILRINONE
     Indication: Cardiac failure chronic
     Route: 050
     Dates: start: 2014
  4. ASPIRIN [Suspect]
     Active Substance: ASPIRIN
     Indication: Product used for unknown indication
     Route: 065
  5. UBIDECARENONE [Concomitant]
     Active Substance: UBIDECARENONE
     Indication: Cardiac failure chronic
     Route: 065
     Dates: start: 201303
  6. UBIDECARENONE [Concomitant]
     Active Substance: UBIDECARENONE
     Route: 065
     Dates: start: 2014
  7. UBIDECARENONE [Concomitant]
     Active Substance: UBIDECARENONE
     Route: 065
     Dates: start: 2016
  8. WARFARIN [Concomitant]
     Active Substance: WARFARIN
     Indication: Cardiac failure chronic
     Route: 065
     Dates: start: 201303
  9. BISOPROLOL [Concomitant]
     Active Substance: BISOPROLOL
     Indication: Cardiac failure chronic
     Route: 065
     Dates: start: 2014
  10. BISOPROLOL [Concomitant]
     Active Substance: BISOPROLOL
     Route: 065
     Dates: start: 2016
  11. AMLODIPINE [Concomitant]
     Active Substance: AMLODIPINE BESYLATE
     Indication: Cardiac failure chronic
     Route: 065
     Dates: start: 2014
  12. ENALAPRIL [Concomitant]
     Active Substance: ENALAPRIL
     Indication: Cardiac failure chronic
     Route: 065
     Dates: start: 2014
  13. COLISTIN [Concomitant]
     Active Substance: COLISTIN
     Indication: Pseudomonal sepsis
     Route: 065
  14. DEXTROSE [Concomitant]
     Active Substance: DEXTROSE
     Indication: Hyperglycinaemia
     Route: 042

REACTIONS (2)
  - Reye^s syndrome [Recovered/Resolved]
  - Drug ineffective [Unknown]
